FAERS Safety Report 5850095-3 (Version None)
Quarter: 2008Q3

REPORT INFORMATION
  Report Type: 
  Country: None (occurrence: None)
  Receive Date: 20080819
  Receipt Date: 20080806
  Transmission Date: 20090109
  Serious: Yes (Life-Threatening, Hospitalization)
  Sender: FDA-Public Use
  Company Number: US-TYCO HEALTHCARE/MALLINCKRODT-T200801268

PATIENT

DRUGS (1)
  1. TRAMADOL HCL [Suspect]
     Indication: CHILD ABUSE
     Route: 048

REACTIONS (3)
  - DYSTONIA [None]
  - MENTAL STATUS CHANGES [None]
  - POISONING [None]
